FAERS Safety Report 18544786 (Version 1)
Quarter: 2020Q4

REPORT INFORMATION
  Report Type: Spontaneous
  Country: US (occurrence: US)
  Receive Date: 20201124
  Receipt Date: 20201124
  Transmission Date: 20210114
  Serious: No
  Sender: FDA-Public Use
  Company Number: None

PATIENT

DRUGS (1)
  1. TRAVOPROST. [Suspect]
     Active Substance: TRAVOPROST
     Route: 047

REACTIONS (4)
  - Madarosis [None]
  - Eye pruritus [None]
  - Eye irritation [None]
  - Product substitution issue [None]
